FAERS Safety Report 6388194-2 (Version None)
Quarter: 2009Q4

REPORT INFORMATION
  Report Type: 
  Country: None (occurrence: None)
  Receive Date: 20091001
  Receipt Date: 20091001
  Transmission Date: 20100525
  Serious: No
  Sender: FDA-Public Use
  Company Number: None

PATIENT
  Sex: Female
  Weight: 94.3482 kg

DRUGS (2)
  1. BENTYL [Suspect]
     Indication: IRRITABLE BOWEL SYNDROME
     Dosage: 1 TABLET 3X DAY MOUTH
     Route: 048
     Dates: start: 20090905, end: 20090912
  2. DICYCLOMINE [Suspect]

REACTIONS (5)
  - DIZZINESS [None]
  - DYSGEUSIA [None]
  - FATIGUE [None]
  - NAUSEA [None]
  - VISION BLURRED [None]
